FAERS Safety Report 9390738 (Version 1)
Quarter: 2013Q3

REPORT INFORMATION
  Report Type: Spontaneous
  Country: US (occurrence: US)
  Receive Date: 20130709
  Receipt Date: 20130709
  Transmission Date: 20140515
  Serious: No
  Sender: FDA-Public Use
  Company Number: US-009507513-1306USA014094

PATIENT
  Sex: Male

DRUGS (1)
  1. AZASITE [Suspect]
     Dosage: 1 DROP PER EYE DAILY
     Route: 047
     Dates: start: 20120626

REACTIONS (5)
  - Incorrect drug administration duration [Unknown]
  - Product packaging quantity issue [Unknown]
  - Product label issue [Unknown]
  - No adverse event [Unknown]
  - Inappropriate schedule of drug administration [Unknown]
